FAERS Safety Report 6232683-8 (Version None)
Quarter: 2009Q2

REPORT INFORMATION
  Report Type: 
  Country: None (occurrence: None)
  Receive Date: 20090612
  Receipt Date: 20090612
  Transmission Date: 20091009
  Serious: No
  Sender: FDA-Public Use
  Company Number: None

PATIENT
  Age: 53 Year
  Sex: Female
  Weight: 90.7194 kg

DRUGS (1)
  1. LISINOPRIL [Suspect]
     Indication: HYPERTENSION
     Dosage: 20 MG DAILY
     Dates: start: 20090401, end: 20090606

REACTIONS (5)
  - COUGH [None]
  - FEELING ABNORMAL [None]
  - INSOMNIA [None]
  - MULTIPLE ALLERGIES [None]
  - THROAT IRRITATION [None]
